FAERS Safety Report 13789158 (Version 1)
Quarter: 2017Q3

REPORT INFORMATION
  Report Type: Spontaneous
  Country: JP (occurrence: JP)
  Receive Date: 20170725
  Receipt Date: 20170725
  Transmission Date: 20171127
  Serious: Yes (Death)
  Sender: FDA-Public Use
  Company Number: JP-JNJFOC-20170607918

PATIENT
  Age: 85 Year
  Sex: Female

DRUGS (2)
  1. XARELTO [Suspect]
     Active Substance: RIVAROXABAN
     Indication: CEREBRAL ARTERY EMBOLISM
     Route: 048
  2. PERSANTIN [Concomitant]
     Active Substance: DIPYRIDAMOLE
     Dosage: DOSAGE: UNKNOWN
     Route: 048

REACTIONS (3)
  - Subdural haematoma [Fatal]
  - Cerebral haemorrhage [Fatal]
  - Cerebral artery embolism [Fatal]
